FAERS Safety Report 6892396-6 (Version None)
Quarter: 2010Q3

REPORT INFORMATION
  Report Type: 
  Country: None (occurrence: None)
  Receive Date: 20100731
  Receipt Date: 20080429
  Transmission Date: 20110219
  Serious: No
  Sender: FDA-Public Use
  Company Number: US-PFIZER INC-2008037627

PATIENT
  Sex: Female
  Weight: 68.49 kg

DRUGS (2)
  1. SULFASALAZINE [Suspect]
     Indication: RHEUMATOID ARTHRITIS
     Dates: end: 20070429
  2. HUMIRA [Suspect]
     Route: 058
     Dates: start: 20070418, end: 20070429

REACTIONS (1)
  - RASH PRURITIC [None]
